FAERS Safety Report 13349817 (Version 1)
Quarter: 2017Q1

REPORT INFORMATION
  Report Type: Spontaneous
  Country: IT (occurrence: IT)
  Receive Date: 20170320
  Receipt Date: 20170320
  Transmission Date: 20170429
  Serious: Yes (Other)
  Sender: FDA-Public Use
  Company Number: IT-ORION CORPORATION ORION PHARMA-TAM 2017-0011

PATIENT
  Age: 42 Year
  Sex: Male

DRUGS (14)
  1. CAPECITABINE. [Suspect]
     Active Substance: CAPECITABINE
     Route: 065
  2. CARBOPLATIN. [Suspect]
     Active Substance: CARBOPLATIN
     Route: 065
     Dates: start: 201305
  3. CYCLOPHOSPHAMIDE. [Suspect]
     Active Substance: CYCLOPHOSPHAMIDE
     Route: 065
     Dates: start: 201102, end: 201303
  4. METHOTREXATE (TRADE NAME UNKNOWN) [Suspect]
     Active Substance: METHOTREXATE
     Route: 065
     Dates: start: 201102, end: 201303
  5. MEGESTROL [Suspect]
     Active Substance: MEGESTROL
     Route: 065
     Dates: start: 200212, end: 200710
  6. ZOLEDRONIC ACID [Suspect]
     Active Substance: ZOLEDRONIC ACID
     Route: 065
     Dates: start: 201305
  7. MEGESTROL [Suspect]
     Active Substance: MEGESTROL
     Route: 065
     Dates: end: 200001
  8. VINORELBINE [Suspect]
     Active Substance: VINORELBINE\VINORELBINE TARTRATE
     Route: 065
     Dates: end: 200212
  9. EVEROLIMUS [Suspect]
     Active Substance: EVEROLIMUS
     Route: 065
     Dates: start: 201405
  10. TAMOXIFEN [Suspect]
     Active Substance: TAMOXIFEN
     Route: 065
     Dates: start: 200710, end: 200805
  11. CYCLOPHOSPHAMIDE. [Suspect]
     Active Substance: CYCLOPHOSPHAMIDE
     Indication: BREAST CANCER
     Dosage: 600 MG/M2, ADMINISTERED DAY18, EVERY 4 WEEKS
     Route: 065
  12. METHOTREXATE (TRADE NAME UNKNOWN) [Suspect]
     Active Substance: METHOTREXATE
     Indication: BREAST CANCER
     Dosage: 40 MG/M2, ADMINISTERED DAY18, EVERY 4 WEEKS
     Route: 065
  13. TAMOXIFEN [Suspect]
     Active Substance: TAMOXIFEN
     Indication: BREAST CANCER
     Dosage: FOR 5 YEARS
     Route: 065
  14. LETROZOLE. [Suspect]
     Active Substance: LETROZOLE
     Route: 065
     Dates: end: 200201

REACTIONS (5)
  - Malignant neoplasm progression [Unknown]
  - Metastases to lung [Unknown]
  - Metastases to bone [Unknown]
  - Breast cancer metastatic [Unknown]
  - Metastases to lymph nodes [Unknown]

NARRATIVE: CASE EVENT DATE: 199605
